FAERS Safety Report 14381270 (Version 1)
Quarter: 2018Q1

REPORT INFORMATION
  Report Type: Spontaneous
  Country: US (occurrence: US)
  Receive Date: 20180112
  Receipt Date: 20180112
  Transmission Date: 20180509
  Serious: Yes (Hospitalization, Disabling, Other)
  Sender: FDA-Public Use
  Company Number: US-009507513-1111USA00989

PATIENT
  Sex: Female
  Weight: 54.43 kg

DRUGS (2)
  1. FOSAMAX [Suspect]
     Active Substance: ALENDRONATE SODIUM
     Indication: OSTEOPOROSIS PROPHYLAXIS
  2. FOSAMAX [Suspect]
     Active Substance: ALENDRONATE SODIUM
     Indication: OSTEOPOROSIS
     Dosage: 70 MG, QW
     Route: 048
     Dates: start: 20021027, end: 200803

REACTIONS (19)
  - Low turnover osteopathy [Not Recovered/Not Resolved]
  - Rotator cuff syndrome [Unknown]
  - Stress urinary incontinence [Unknown]
  - Pain [Unknown]
  - Carpal tunnel syndrome [Unknown]
  - Large intestine polyp [Unknown]
  - Femur fracture [Unknown]
  - Osteopenia [Unknown]
  - Fall [Unknown]
  - Lumbar spinal stenosis [Unknown]
  - Spinal osteoarthritis [Unknown]
  - Rectocele [Unknown]
  - Rotator cuff syndrome [Unknown]
  - Onychomycosis [Unknown]
  - Bursitis [Unknown]
  - Uterine prolapse [Unknown]
  - Seasonal affective disorder [Unknown]
  - Femur fracture [Unknown]
  - Myalgia [Unknown]

NARRATIVE: CASE EVENT DATE: 200411
